FAERS Safety Report 12607700 (Version 1)
Quarter: 2016Q3

REPORT INFORMATION
  Report Type: Other
  Country: US (occurrence: US)
  Receive Date: 20160729
  Receipt Date: 20160729
  Transmission Date: 20161109
  Serious: No
  Sender: FDA-Public Use
  Company Number: US-NOVAST LABORATORIES, LTD-US-2015NOV000076

PATIENT

DRUGS (1)
  1. TRI-LINYAH [Suspect]
     Active Substance: ETHINYL ESTRADIOL\NORGESTIMATE
     Indication: CONTRACEPTION
     Dosage: 0.18/0.035 MG; 0.215/0.035MG; 0.25/0.035MG; 1X28 COMPACT BLISTER CARD; DF
     Route: 048
     Dates: start: 2015

REACTIONS (1)
  - Alopecia [Unknown]

NARRATIVE: CASE EVENT DATE: 201508
